FAERS Safety Report 12429485 (Version 1)
Quarter: 2016Q2

REPORT INFORMATION
  Report Type: Spontaneous
  Country: BR (occurrence: BR)
  Receive Date: 20160602
  Receipt Date: 20160602
  Transmission Date: 20160815
  Serious: Yes (Other)
  Sender: FDA-Public Use
  Company Number: BR-BAYER-2016-101132

PATIENT
  Sex: Female

DRUGS (4)
  1. NATELE [Concomitant]
     Active Substance: VITAMINS
     Dosage: UNK
     Dates: start: 20160115
  2. QLAIRA [Suspect]
     Active Substance: DIENOGEST\ESTRADIOL VALERATE
     Indication: CONTRACEPTION
     Dosage: UNK
     Route: 048
     Dates: start: 201504, end: 201512
  3. QLAIRA [Suspect]
     Active Substance: DIENOGEST\ESTRADIOL VALERATE
     Indication: HAEMORRHAGE
  4. DOSS [ALFACALCIDOL] [Concomitant]
     Dosage: UNK
     Dates: start: 20160115

REACTIONS (4)
  - Pregnancy on oral contraceptive [None]
  - Drug ineffective [None]
  - Foetal death [None]
  - Platelet count decreased [None]

NARRATIVE: CASE EVENT DATE: 201510
